FAERS Safety Report 15801233 (Version 2)
Quarter: 2020Q2

REPORT INFORMATION
  Report Type: Spontaneous
  Country: US (occurrence: US)
  Receive Date: 20190109
  Receipt Date: 20200429
  Transmission Date: 20200713
  Serious: Yes (Death, Other)
  Sender: FDA-Public Use
  Company Number: US-BRISTOL-MYERS SQUIBB COMPANY-BMS-2019-001237

PATIENT
  Age: 88 Year
  Sex: Female

DRUGS (2)
  1. ELIQUIS [Suspect]
     Active Substance: APIXABAN
     Indication: CARDIAC ABLATION
     Dosage: UNK UNK, BID
     Route: 048
     Dates: start: 20150320
  2. ELIQUIS [Suspect]
     Active Substance: APIXABAN
     Indication: CARDIAC PACEMAKER INSERTION
     Route: 065

REACTIONS (4)
  - Cardiogenic shock [Fatal]
  - Myopathy [Fatal]
  - Intentional product use issue [Unknown]
  - Coronary artery disease [Fatal]

NARRATIVE: CASE EVENT DATE: 20180426
